FAERS Safety Report 9251050 (Version 1)
Quarter: 2013Q2

REPORT INFORMATION
  Report Type: Report from Study
  Country: FR (occurrence: FR)
  Receive Date: 20130424
  Receipt Date: 20130424
  Transmission Date: 20140414
  Serious: Yes (Other)
  Sender: FDA-Public Use
  Company Number: FR-BAYER-2013-024272

PATIENT
  Age: 71 Year
  Sex: Male

DRUGS (4)
  1. REGORAFENIB [Suspect]
     Indication: COLORECTAL CANCER METASTATIC
     Dosage: 160 MG, UNK
     Dates: start: 20130123, end: 20130415
  2. MYOLASTAN [Concomitant]
     Indication: MUSCULOSKELETAL STIFFNESS
     Dosage: DAILY DOSE 4 DF
     Dates: start: 20130201
  3. SEDATIF PC [Concomitant]
     Indication: SLEEP DISORDER
     Dosage: 0.5 DF, BID
     Dates: start: 20130201, end: 20130302
  4. XANAX [Concomitant]
     Indication: SLEEP DISORDER
     Dosage: 1 DF, QD
     Dates: start: 20130205, end: 20130408

REACTIONS (7)
  - General physical health deterioration [None]
  - Decreased appetite [None]
  - Weight decreased [None]
  - Musculoskeletal stiffness [None]
  - Seborrhoeic dermatitis [None]
  - Palmar-plantar erythrodysaesthesia syndrome [Recovered/Resolved]
  - Asthenia [None]
